FAERS Safety Report 21870330 (Version 1)
Quarter: 2023Q1

REPORT INFORMATION
  Report Type: Spontaneous
  Country: PL (occurrence: PL)
  Receive Date: 20230117
  Receipt Date: 20230117
  Transmission Date: 20230418
  Serious: Yes (Other)
  Sender: FDA-Public Use
  Company Number: PL-AMGEN-POLSP2023005095

PATIENT
  Age: 70 Year
  Sex: Female

DRUGS (7)
  1. PANITUMUMAB [Suspect]
     Active Substance: PANITUMUMAB
     Indication: Rectal cancer
     Dosage: 6 MILLIGRAM BODY WEIGHT 1 DA
     Route: 065
     Dates: start: 20220509
  2. LEUCOVORIN [Suspect]
     Active Substance: LEUCOVORIN
     Indication: Colorectal cancer
     Dosage: UNK
     Route: 065
     Dates: start: 20220509
  3. FLUOROURACIL [Suspect]
     Active Substance: FLUOROURACIL
     Indication: Colorectal cancer
     Dosage: 400 MILLIMOLE PER SQUARE METRE,  BOLUS DAY 1 - 2
     Route: 040
     Dates: start: 20220509
  4. FLUOROURACIL [Suspect]
     Active Substance: FLUOROURACIL
     Dosage: 600 MILLIMOLE PER SQUARE METRE,  BOLUS DAY 1 - 2
     Route: 040
     Dates: start: 20220509
  5. IRINOTECAN [Suspect]
     Active Substance: IRINOTECAN
     Indication: Colorectal cancer
     Dosage: UNK,
     Route: 040
     Dates: start: 20220509
  6. LEVOLEUCOVORIN DISODIUM [Suspect]
     Active Substance: LEVOLEUCOVORIN DISODIUM
     Indication: Colorectal cancer
     Dosage: 100 MILLIMOLE PER SQUARE METRE, 2 HOUR INFUSION DAY 1 - 2
     Route: 040
     Dates: start: 20220509
  7. GLUCOPHAGE [Concomitant]
     Active Substance: METFORMIN HYDROCHLORIDE
     Indication: Product used for unknown indication
     Dosage: UNK
     Route: 065

REACTIONS (9)
  - Vascular device infection [Unknown]
  - Diarrhoea [Unknown]
  - Conjunctival disorder [Unknown]
  - Oral disorder [Unknown]
  - Oesophageal disorder [Unknown]
  - Anorectal disorder [Unknown]
  - Vaginal disorder [Unknown]
  - Mucosal disorder [Unknown]
  - Rash pustular [Unknown]
